FAERS Safety Report 21498178 (Version 1)
Quarter: 2022Q4

REPORT INFORMATION
  Report Type: Report from Study
  Country: MX (occurrence: MX)
  Receive Date: 20221024
  Receipt Date: 20221024
  Transmission Date: 20230112
  Serious: Yes (Death, Other)
  Sender: FDA-Public Use
  Company Number: MX-BRISTOL-MYERS SQUIBB COMPANY-2022-125822

PATIENT
  Age: 41 Year
  Sex: Male

DRUGS (1)
  1. OPDIVO [Suspect]
     Active Substance: NIVOLUMAB
     Indication: Malignant melanoma
     Dosage: FORTNIGHTLY
     Route: 042
     Dates: start: 20211025, end: 20220705

REACTIONS (1)
  - Death [Fatal]

NARRATIVE: CASE EVENT DATE: 20221003
